FAERS Safety Report 21054248 (Version 1)
Quarter: 2022Q3

REPORT INFORMATION
  Report Type: Spontaneous
  Country: CN (occurrence: CN)
  Receive Date: 20220707
  Receipt Date: 20220707
  Transmission Date: 20221027
  Serious: Yes (Other)
  Sender: FDA-Public Use
  Company Number: None

PATIENT
  Age: 60 Year
  Sex: Female
  Weight: 50 kg

DRUGS (9)
  1. CYCLOPHOSPHAMIDE [Suspect]
     Active Substance: CYCLOPHOSPHAMIDE
     Indication: Breast cancer female
     Dosage: 0. 60, 000 G ONCE DAILY, CYCLOPHOSPHAMIDE DILUTED WITH SODIUM CHLORIDE
     Route: 041
     Dates: start: 20220612, end: 20220612
  2. CYCLOPHOSPHAMIDE [Suspect]
     Active Substance: CYCLOPHOSPHAMIDE
     Indication: Breast cancer stage II
  3. SODIUM CHLORIDE [Suspect]
     Active Substance: SODIUM CHLORIDE
     Indication: Medication dilution
     Dosage: 250 ML, QD, CYCLOPHOSPHAMIDE DILUTED WITH SODIUM CHLORIDE
     Route: 041
     Dates: start: 20220612, end: 20220612
  4. SODIUM CHLORIDE [Suspect]
     Active Substance: SODIUM CHLORIDE
     Dosage: 250 ML, QD, DOCETAXEL DILUTED WITH SODIUM CHLORIDE
     Route: 041
     Dates: start: 20220612, end: 20220612
  5. SODIUM CHLORIDE [Suspect]
     Active Substance: SODIUM CHLORIDE
     Dosage: 100 ML, QD, DOXORUBICIN HYDROCHLORIDE DILUTED WITH SODIUM CHLORDE
     Route: 041
     Dates: start: 20220612, end: 20220612
  6. DOCETAXEL [Suspect]
     Active Substance: DOCETAXEL
     Indication: Breast cancer female
     Dosage: 90 MG, QD, DOCETAXEL INJECTION 90MG + 250MLNS
     Route: 041
     Dates: start: 20220612, end: 20220612
  7. DOCETAXEL [Suspect]
     Active Substance: DOCETAXEL
     Indication: Breast cancer stage II
  8. DOXORUBICIN HYDROCHLORIDE [Suspect]
     Active Substance: DOXORUBICIN HYDROCHLORIDE
     Indication: Breast cancer female
     Dosage: 60 MG, QD, DOXORUBICIN HYDROCHLORIDE 60MG + 100MLNS
     Route: 041
     Dates: start: 20220612, end: 20220612
  9. DOXORUBICIN HYDROCHLORIDE [Suspect]
     Active Substance: DOXORUBICIN HYDROCHLORIDE
     Indication: Breast cancer stage II

REACTIONS (1)
  - Myelosuppression [Recovered/Resolved]

NARRATIVE: CASE EVENT DATE: 20220616
